FAERS Safety Report 7418353-9 (Version None)
Quarter: 2011Q2

REPORT INFORMATION
  Report Type: 
  Country: None (occurrence: None)
  Receive Date: 20110415
  Receipt Date: 20110407
  Transmission Date: 20111010
  Serious: Yes (Death)
  Sender: FDA-Public Use
  Company Number: A0923032A

PATIENT
  Age: 62 Year
  Sex: Female

DRUGS (1)
  1. ADVAIR HFA [Suspect]
     Indication: CHRONIC OBSTRUCTIVE PULMONARY DISEASE
     Route: 055
     Dates: start: 20090501, end: 20110314

REACTIONS (3)
  - DEATH [None]
  - PNEUMONIA [None]
  - STAPHYLOCOCCAL INFECTION [None]
